FAERS Safety Report 5008427-4 (Version None)
Quarter: 2006Q1

REPORT INFORMATION
  Report Type: 
  Country: None (occurrence: None)
  Receive Date: 20060331
  Receipt Date: 20060110
  Transmission Date: 20060701
  Serious: Yes (Hospitalization)
  Sender: FDA-Public Use
  Company Number: US164258

PATIENT
  Age: 46 Year
  Sex: Male
  Weight: 82.2 kg

DRUGS (3)
  1. NEULASTA [Suspect]
     Indication: CHEMOTHERAPY
     Dosage: 6 MG, CYCLICAL, SC
     Route: 058
     Dates: start: 20060104, end: 20060104
  2. CARBOPLATIN [Concomitant]
  3. PACLITAXEL [Concomitant]

REACTIONS (1)
  - SPLENIC RUPTURE [None]
